FAERS Safety Report 18538044 (Version 3)
Quarter: 2020Q4

REPORT INFORMATION
  Report Type: Report from Study
  Country: US (occurrence: US)
  Receive Date: 20201123
  Receipt Date: 20201203
  Transmission Date: 20210114
  Serious: Yes (Death, Hospitalization, Other)
  Sender: FDA-Public Use
  Company Number: US-GILEAD-2019-0432608

PATIENT
  Age: 81 Year
  Sex: Male
  Weight: 86.9 kg

DRUGS (49)
  1. IMMUNOGLOBULIN HUMAN [Concomitant]
     Active Substance: HUMAN IMMUNOGLOBULIN G
     Dosage: UNK
     Route: 042
     Dates: start: 202002
  2. FLUCONAZOLE. [Concomitant]
     Active Substance: FLUCONAZOLE
     Dosage: UNK
     Dates: start: 20191007
  3. BENADRYL [Concomitant]
     Active Substance: DIPHENHYDRAMINE HYDROCHLORIDE
  4. LEVOFLOXACIN. [Concomitant]
     Active Substance: LEVOFLOXACIN
  5. FAMOTIDINE. [Concomitant]
     Active Substance: FAMOTIDINE
  6. OXYGEN. [Concomitant]
     Active Substance: OXYGEN
  7. MAGIC MIX [Concomitant]
  8. AXICABTAGENE CILOLEUCEL [Suspect]
     Active Substance: AXICABTAGENE CILOLEUCEL
     Indication: DIFFUSE LARGE B-CELL LYMPHOMA
     Dosage: 68 ML
     Route: 042
     Dates: start: 20190924, end: 20190924
  9. APPLE CIDER VINEGAR [Concomitant]
     Active Substance: APPLE CIDER VINEGAR
     Dosage: 500 MG, QD
     Route: 048
     Dates: start: 201809, end: 20190924
  10. PROCHLORPERAZINE. [Concomitant]
     Active Substance: PROCHLORPERAZINE
  11. METHYLPREDNISOLON [METHYLPREDNISOLONE] [Concomitant]
     Active Substance: METHYLPREDNISOLONE
  12. INSULIN GLARGINE [Concomitant]
     Active Substance: INSULIN GLARGINE
  13. PENTAMIDINE [Concomitant]
     Active Substance: PENTAMIDINE
  14. TAMSULOSIN [Concomitant]
     Active Substance: TAMSULOSIN
     Dosage: UNK
     Dates: start: 20190301
  15. FINASTERIDE. [Concomitant]
     Active Substance: FINASTERIDE
     Dosage: UNK
     Dates: start: 20180605
  16. LATANOPROST. [Concomitant]
     Active Substance: LATANOPROST
     Dosage: 1 DROP DAILY
     Route: 050
     Dates: start: 20061114, end: 20191101
  17. FLONASE [Concomitant]
     Active Substance: FLUTICASONE PROPIONATE
  18. ENOXAPARIN [Concomitant]
     Active Substance: ENOXAPARIN
  19. CHLORPROMAZINE. [Concomitant]
     Active Substance: CHLORPROMAZINE
  20. MAGIC MOUTHWASH [Concomitant]
     Active Substance: DIPHENHYDRAMINE HYDROCHLORIDE\LIDOCAINE HYDROCHLORIDE\NYSTATIN
  21. ACYCLOVIR [ACICLOVIR] [Concomitant]
     Active Substance: ACYCLOVIR
     Dosage: UNK
     Dates: start: 20190924
  22. LEVETIRACETAM. [Concomitant]
     Active Substance: LEVETIRACETAM
     Dosage: UNK
     Dates: start: 20190924
  23. MAGNESIUM CITRATE. [Concomitant]
     Active Substance: MAGNESIUM CITRATE
  24. SENNA [SENNOSIDE A+B] [Concomitant]
     Active Substance: SENNOSIDES A AND B
  25. AZITHROMYCIN ANHYDROUS. [Concomitant]
     Active Substance: AZITHROMYCIN ANHYDROUS
  26. CALCIUM [Concomitant]
     Active Substance: CALCIUM
     Dosage: 1500 MG, QD
     Route: 048
     Dates: start: 20120531, end: 20190924
  27. COLACE [Concomitant]
     Active Substance: DOCUSATE SODIUM
  28. MIRALAX [Concomitant]
     Active Substance: POLYETHYLENE GLYCOL 3350
  29. LIDOCAINE. [Concomitant]
     Active Substance: LIDOCAINE
  30. RED YEAST RICE [Concomitant]
     Active Substance: DIETARY SUPPLEMENT
  31. ALLOPURINOL. [Concomitant]
     Active Substance: ALLOPURINOL
  32. PLATELETS [Concomitant]
     Active Substance: HUMAN PLATELET, ALLOGENIC
  33. INSULIN LISPRO [Concomitant]
     Active Substance: INSULIN LISPRO
  34. IMMUNE GLOBULIN [Concomitant]
  35. FLUDARABINE [Suspect]
     Active Substance: FLUDARABINE PHOSPHATE
     Indication: BONE MARROW CONDITIONING REGIMEN
     Dosage: UNK
     Route: 042
     Dates: start: 20190919
  36. CYCLOPHOSPHAMIDE. [Suspect]
     Active Substance: CYCLOPHOSPHAMIDE
     Indication: BONE MARROW CONDITIONING REGIMEN
     Dosage: UNK
     Route: 042
     Dates: start: 20190919
  37. ACETAMINOPHEN. [Concomitant]
     Active Substance: ACETAMINOPHEN
     Dosage: 81 MG, QD
     Route: 048
     Dates: start: 2009, end: 20190924
  38. HYDROCORTISONE. [Concomitant]
     Active Substance: HYDROCORTISONE
     Dosage: 1 APPLICATION PRN
     Route: 061
     Dates: start: 199812, end: 20200927
  39. MVI [VITAMINS NOS] [Concomitant]
  40. ONDANSETRON [Concomitant]
     Active Substance: ONDANSETRON
  41. SODIUM CHLORIDE 0.9% [Concomitant]
     Active Substance: SODIUM CHLORIDE
  42. VANCOMYCIN [Concomitant]
     Active Substance: VANCOMYCIN
  43. INFLUENZA VACCINE [Concomitant]
     Active Substance: INFLUENZA VIRUS VACCINE
  44. TIMOLOL. [Concomitant]
     Active Substance: TIMOLOL
  45. COMBIGAN [Concomitant]
     Active Substance: BRIMONIDINE TARTRATE\TIMOLOL MALEATE
  46. AXICABTAGENE CILOLEUCEL [Suspect]
     Active Substance: AXICABTAGENE CILOLEUCEL
     Indication: B-CELL LYMPHOMA
  47. LISINOPRIL. [Concomitant]
     Active Substance: LISINOPRIL
     Dosage: UNK
     Dates: start: 20191006
  48. SULFAMETHOXAZOLE AND TRIMETHOPRIM [Concomitant]
     Active Substance: SULFAMETHOXAZOLE\TRIMETHOPRIM
     Dosage: UNK
     Dates: start: 20191007
  49. FILGRASTIM [Concomitant]
     Active Substance: FILGRASTIM

REACTIONS (2)
  - Toxic encephalopathy [Fatal]
  - Muscular weakness [Recovered/Resolved]

NARRATIVE: CASE EVENT DATE: 20191008
